FAERS Safety Report 6392181-8 (Version None)
Quarter: 2009Q4

REPORT INFORMATION
  Report Type: 
  Country: None (occurrence: None)
  Receive Date: 20091005
  Receipt Date: 20090928
  Transmission Date: 20100525
  Serious: Yes (Death)
  Sender: FDA-Public Use
  Company Number: 2009SP027489

PATIENT
  Age: 66 Year
  Sex: Female

DRUGS (2)
  1. TEMOZOLOMIDE [Suspect]
     Indication: GLIOBLASTOMA
     Dates: start: 20070701
  2. RADIOTHERAPY [Concomitant]

REACTIONS (11)
  - ASTERIXIS [None]
  - ATAXIA [None]
  - CEREBELLAR SYNDROME [None]
  - CEREBRAL HAEMORRHAGE [None]
  - CHOLESTASIS [None]
  - COGNITIVE DISORDER [None]
  - DISORIENTATION [None]
  - FATIGUE [None]
  - GRAND MAL CONVULSION [None]
  - HYPOREFLEXIA [None]
  - WEIGHT DECREASED [None]
